FAERS Safety Report 7691973-2 (Version None)
Quarter: 2011Q3

REPORT INFORMATION
  Report Type: 
  Country: None (occurrence: None)
  Receive Date: 20110818
  Receipt Date: 20110811
  Transmission Date: 20111222
  Serious: Yes (Other)
  Sender: FDA-Public Use
  Company Number: US-US-EMD SERONO, INC.-7076486

PATIENT
  Sex: Female

DRUGS (1)
  1. REBIF [Suspect]
     Indication: MULTIPLE SCLEROSIS
     Route: 058
     Dates: start: 20030226

REACTIONS (5)
  - INJECTION SITE PAIN [None]
  - SPINAL OSTEOARTHRITIS [None]
  - INJECTION SITE MASS [None]
  - INJECTION SITE EXTRAVASATION [None]
  - INJECTION SITE ERYTHEMA [None]
